FAERS Safety Report 18340209 (Version 2)
Quarter: 2020Q4

REPORT INFORMATION
  Report Type: Spontaneous
  Country: HR (occurrence: HR)
  Receive Date: 20201002
  Receipt Date: 20201214
  Transmission Date: 20210113
  Serious: Yes (Death, Hospitalization, Other)
  Sender: FDA-Public Use
  Company Number: NVSC2020HR267170

PATIENT
  Age: 63 Year
  Sex: Male

DRUGS (1)
  1. KYMRIAH [Suspect]
     Active Substance: TISAGENLECLEUCEL
     Indication: DIFFUSE LARGE B-CELL LYMPHOMA
     Dosage: UNK
     Route: 042

REACTIONS (6)
  - Pyrexia [Unknown]
  - Pancytopenia [Unknown]
  - Escherichia infection [Unknown]
  - Cardiac arrest [Fatal]
  - Disseminated intravascular coagulation [Unknown]
  - Cytokine release syndrome [Unknown]
